FAERS Safety Report 6286891-0 (Version None)
Quarter: 2009Q3

REPORT INFORMATION
  Report Type: 
  Country: None (occurrence: None)
  Receive Date: 20090728
  Receipt Date: 20090723
  Transmission Date: 20100115
  Serious: Yes (Disabling)
  Sender: FDA-Public Use
  Company Number: FR-MERCK-0907FRA00075

PATIENT
  Age: 50 Year
  Sex: Female

DRUGS (1)
  1. NOROXIN [Suspect]
     Indication: CYSTITIS
     Route: 048
     Dates: start: 20081218, end: 20081221

REACTIONS (5)
  - ARTHRALGIA [None]
  - MEMORY IMPAIRMENT [None]
  - MYALGIA [None]
  - PARAESTHESIA [None]
  - VISUAL ACUITY REDUCED [None]
